FAERS Safety Report 10196123 (Version 1)
Quarter: 2014Q2

REPORT INFORMATION
  Report Type: Spontaneous
  Country: US (occurrence: US)
  Receive Date: 20140527
  Receipt Date: 20140527
  Transmission Date: 20141212
  Serious: Yes (Hospitalization, Other)
  Sender: FDA-Public Use
  Company Number: US-ELI_LILLY_AND_COMPANY-US201405004834

PATIENT
  Sex: Male

DRUGS (3)
  1. HUMULIN 30% REGULAR, 70% NPH [Suspect]
     Indication: DIABETES MELLITUS
     Dosage: UNK, QID
     Route: 065
     Dates: start: 2013
  2. HUMALOG LISPRO [Suspect]
     Indication: DIABETES MELLITUS
     Route: 065
  3. LANTUS [Concomitant]

REACTIONS (1)
  - Blood glucose increased [Unknown]
